FAERS Safety Report 4358302-3 (Version None)
Quarter: 2004Q2

REPORT INFORMATION
  Report Type: 
  Country: None (occurrence: None)
  Receive Date: 20040511
  Receipt Date: 20040428
  Transmission Date: 20050107
  Serious: Yes (Life-Threatening, Hospitalization)
  Sender: FDA-Public Use
  Company Number: US-JNJFOC-20040303008

PATIENT
  Age: 65 Year
  Sex: Female

DRUGS (4)
  1. REMICADE [Suspect]
     Indication: RHEUMATOID ARTHRITIS
     Dosage: INTRAVENOUS
     Route: 042
     Dates: start: 20040122
  2. METHOTREXATE [Suspect]
     Indication: RHEUMATOID ARTHRITIS
  3. PREDNISONE [Concomitant]
  4. ACTONEL [Concomitant]

REACTIONS (11)
  - ASTHENIA [None]
  - BACTERIAL SEPSIS [None]
  - BLOOD PH DECREASED [None]
  - DEHYDRATION [None]
  - DIABETES MELLITUS [None]
  - DIARRHOEA [None]
  - HAEMOGLOBIN DECREASED [None]
  - NAUSEA [None]
  - PULMONARY OEDEMA [None]
  - SHOCK [None]
  - VOMITING [None]
